FAERS Safety Report 15481690 (Version 1)
Quarter: 2018Q4

REPORT INFORMATION
  Report Type: Spontaneous
  Country: US (occurrence: US)
  Receive Date: 20181010
  Receipt Date: 20181010
  Transmission Date: 20190205
  Serious: No
  Sender: FDA-Public Use
  Company Number: US-TEVA-2018-US-961915

PATIENT
  Sex: Male

DRUGS (1)
  1. GLIPIZIDE ACTAVIS [Suspect]
     Active Substance: GLIPIZIDE

REACTIONS (2)
  - Blood glucose abnormal [Unknown]
  - Drug effect decreased [Unknown]
